FAERS Safety Report 9352730 (Version 1)
Quarter: 2013Q2

REPORT INFORMATION
  Report Type: Spontaneous
  Country: US (occurrence: None)
  Receive Date: 20130614
  Receipt Date: 20130614
  Transmission Date: 20140414
  Serious: Yes (Other)
  Sender: FDA-Public Use
  Company Number: None

PATIENT
  Sex: Female

DRUGS (1)
  1. ENBREL SURECLICK 50MG AMGEN INC [Suspect]
     Dosage: ONCE PER WEEK
     Route: 058
     Dates: start: 20130516

REACTIONS (3)
  - Mood swings [None]
  - Aggression [None]
  - Emotional disorder [None]
